FAERS Safety Report 22057290 (Version 1)
Quarter: 2023Q1

REPORT INFORMATION
  Report Type: Spontaneous
  Country: US (occurrence: US)
  Receive Date: 20230303
  Receipt Date: 20230303
  Transmission Date: 20230418
  Serious: Yes (Other)
  Sender: FDA-Public Use
  Company Number: US-drreddys-LIT/USA/23/0161760

PATIENT
  Age: 32 Year
  Sex: Female

DRUGS (3)
  1. MINOCYCLINE HYDROCHLORIDE [Suspect]
     Active Substance: MINOCYCLINE HYDROCHLORIDE
     Indication: Escherichia bacteraemia
     Route: 048
  2. BETHANECHOL [Suspect]
     Active Substance: BETHANECHOL
     Indication: Escherichia bacteraemia
  3. VITAMIN C [Suspect]
     Active Substance: ASCORBIC ACID
     Indication: Escherichia bacteraemia

REACTIONS (1)
  - Drug ineffective [Unknown]
